FAERS Safety Report 15714291 (Version 2)
Quarter: 2019Q1

REPORT INFORMATION
  Report Type: Spontaneous
  Country: US (occurrence: US)
  Receive Date: 20181212
  Receipt Date: 20190211
  Transmission Date: 20190417
  Serious: Yes (Hospitalization, Other)
  Sender: FDA-Public Use
  Company Number: US-HIKMA PHARMACEUTICALS USA INC.-US-H14001-18-08736

PATIENT
  Age: 62 Year
  Sex: Female

DRUGS (6)
  1. DIPHENHYDRAMINE. [Suspect]
     Active Substance: DIPHENHYDRAMINE
     Indication: ANAPHYLACTIC REACTION
  2. DIPHENHYDRAMINE. [Suspect]
     Active Substance: DIPHENHYDRAMINE
     Indication: ARRHYTHMIA
  3. ZANTAC [Concomitant]
     Active Substance: RANITIDINE HYDROCHLORIDE
     Indication: PRODUCT USED FOR UNKNOWN INDICATION
     Route: 065
  4. DIPHENHYDRAMINE. [Suspect]
     Active Substance: DIPHENHYDRAMINE
     Indication: ATRIAL FIBRILLATION
  5. DIPHENHYDRAMINE. [Suspect]
     Active Substance: DIPHENHYDRAMINE
     Indication: MULTIPLE ALLERGIES
     Route: 058
     Dates: start: 1999
  6. DIPHENHYDRAMINE. [Suspect]
     Active Substance: DIPHENHYDRAMINE
     Indication: CARDIAC MURMUR

REACTIONS (12)
  - Meniscus injury [Unknown]
  - Off label use [Not Recovered/Not Resolved]
  - Dysphagia [Unknown]
  - Injection site swelling [Unknown]
  - Drug ineffective [Not Recovered/Not Resolved]
  - Treatment noncompliance [Not Recovered/Not Resolved]
  - Injection site pain [Not Recovered/Not Resolved]
  - Fall [Unknown]
  - Joint dislocation [Unknown]
  - Headache [Unknown]
  - Multiple fractures [Unknown]
  - Intentional product use issue [Not Recovered/Not Resolved]

NARRATIVE: CASE EVENT DATE: 2017
